FAERS Safety Report 13787107 (Version 3)
Quarter: 2017Q3

REPORT INFORMATION
  Report Type: Spontaneous
  Country: US (occurrence: US)
  Receive Date: 20170725
  Receipt Date: 20170913
  Transmission Date: 20171127
  Serious: Yes (Other)
  Sender: FDA-Public Use
  Company Number: US-GLAXOSMITHKLINE-US2017113739

PATIENT
  Age: 13 Year
  Sex: Male

DRUGS (5)
  1. KEPPRA [Concomitant]
     Active Substance: LEVETIRACETAM
  2. LAMICTAL [Suspect]
     Active Substance: LAMOTRIGINE
     Indication: SEIZURE
     Dosage: UNK
     Route: 048
  3. POTIGA [Suspect]
     Active Substance: EZOGABINE
     Indication: PRODUCT USED FOR UNKNOWN INDICATION
     Dosage: UNK
     Route: 048
  4. STRATTERA [Suspect]
     Active Substance: ATOMOXETINE HYDROCHLORIDE
     Indication: PRODUCT USED FOR UNKNOWN INDICATION
     Dosage: UNK
  5. APTIOM [Concomitant]
     Active Substance: ESLICARBAZEPINE ACETATE

REACTIONS (11)
  - Product use issue [Unknown]
  - Agitation [Recovered/Resolved]
  - Screaming [Unknown]
  - Dyspepsia [Recovered/Resolved]
  - Hypersomnia [Unknown]
  - Product availability issue [Unknown]
  - Generalised tonic-clonic seizure [Not Recovered/Not Resolved]
  - Anger [Unknown]
  - Drug administered to patient of inappropriate age [Unknown]
  - Aggression [Unknown]
  - Drug ineffective [Recovered/Resolved]

NARRATIVE: CASE EVENT DATE: 20170731
